FAERS Safety Report 6212000-X (Version None)
Quarter: 2009Q2

REPORT INFORMATION
  Report Type: 
  Country: None (occurrence: None)
  Receive Date: 20090529
  Receipt Date: 20090518
  Transmission Date: 20091009
  Serious: Yes (Hospitalization)
  Sender: FDA-Public Use
  Company Number: 310024K09USA

PATIENT
  Age: 36 Year
  Sex: Female

DRUGS (1)
  1. GONAL-F [Suspect]
     Indication: INFERTILITY
     Dosage: 150 IU
     Dates: start: 20080101, end: 20080101

REACTIONS (3)
  - ABORTION SPONTANEOUS [None]
  - DRUG EXPOSURE DURING PREGNANCY [None]
  - PELVIC INFLAMMATORY DISEASE [None]
